FAERS Safety Report 5311215-2 (Version None)
Quarter: 2007Q2

REPORT INFORMATION
  Report Type: 
  Country: None (occurrence: None)
  Receive Date: 20070423
  Receipt Date: 20070404
  Transmission Date: 20071010
  Serious: Yes (Disabling, Other)
  Sender: FDA-Public Use
  Company Number: BR-1162637

PATIENT
  Age: 18 Year
  Sex: Male

DRUGS (2)
  1. ECONOPRED [Suspect]
     Indication: OCULAR DISCOMFORT
     Dosage: 1 GTT OD Q3H, OPHTHALMIC
     Route: 047
     Dates: start: 20060612, end: 20060621
  2. VIGAMOX [Suspect]
     Dosage: 1 GTT Q8H OPHTHALMIC
     Route: 047
     Dates: start: 20060619, end: 20060621

REACTIONS (5)
  - BLINDNESS UNILATERAL [None]
  - CORNEAL OPACITY [None]
  - CORNEAL PERFORATION [None]
  - EYE PAIN [None]
  - PRURITUS [None]
